FAERS Safety Report 21709512 (Version 1)
Quarter: 2022Q4

REPORT INFORMATION
  Report Type: Spontaneous
  Country: US (occurrence: US)
  Receive Date: 20221210
  Receipt Date: 20221210
  Transmission Date: 20230112
  Serious: No
  Sender: FDA-Public Use
  Company Number: US-JNJFOC-20221206488

PATIENT
  Age: 71 Year
  Sex: Female

DRUGS (5)
  1. XARELTO [Suspect]
     Active Substance: RIVAROXABAN
     Indication: Atrial fibrillation
     Dosage: SERIAL NUMBER 100026302352?PRESCRIPTION NUMBER 7860755
     Route: 048
     Dates: start: 20221109
  2. XARELTO [Suspect]
     Active Substance: RIVAROXABAN
     Indication: Cerebrovascular accident prophylaxis
  3. ASPIRIN [Suspect]
     Active Substance: ASPIRIN
     Indication: Cerebrovascular accident prophylaxis
     Route: 065
  4. DULOXETINE [Concomitant]
     Active Substance: DULOXETINE
     Indication: Product used for unknown indication
     Route: 065
  5. TIKOSYN [Concomitant]
     Active Substance: DOFETILIDE
     Indication: Atrial fibrillation
     Route: 065

REACTIONS (3)
  - International normalised ratio increased [Unknown]
  - Product physical issue [Unknown]
  - Wound haemorrhage [Recovering/Resolving]

NARRATIVE: CASE EVENT DATE: 20220101
